FAERS Safety Report 8966597 (Version 1)
Quarter: 2012Q4

REPORT INFORMATION
  Report Type: 
  Country: US (occurrence: US)
  Receive Date: 20121214
  Receipt Date: 20121214
  Transmission Date: 20130627
  Serious: No
  Sender: FDA-Public Use
  Company Number: AE-ASTRAZENECA-2012SE91364

PATIENT
  Age: 56 Year
  Sex: Female
  Weight: 77.1 kg

DRUGS (2)
  1. SYMBICORT PMDI [Suspect]
     Dosage: 160/4.5 DAILY
     Route: 055
     Dates: start: 20120919
  2. SYMBICORT PMDI [Suspect]
     Dosage: ONE PUFF DAILY
     Route: 055
     Dates: start: 20121121

REACTIONS (2)
  - Dyspnoea [Unknown]
  - Intentional drug misuse [Unknown]
